FAERS Safety Report 5358697-8 (Version None)
Quarter: 2007Q2

REPORT INFORMATION
  Report Type: 
  Country: None (occurrence: None)
  Receive Date: 20070615
  Receipt Date: 20070606
  Transmission Date: 20071010
  Serious: Yes (Hospitalization)
  Sender: FDA-Public Use
  Company Number: US-AMGEN-US159448

PATIENT
  Sex: Male

DRUGS (14)
  1. AMG 706 [Suspect]
     Indication: METASTATIC NEOPLASM
     Route: 048
     Dates: start: 20051028
  2. PANITUMUMAB [Suspect]
     Route: 042
     Dates: start: 20051026
  3. FLUOROURACIL [Suspect]
     Route: 042
  4. IRINOTECAN HCL [Suspect]
     Route: 042
  5. LEUCOVORIN CALCIUM [Suspect]
     Route: 042
  6. ZOFRAN [Concomitant]
     Route: 065
  7. COMPAZINE [Concomitant]
     Route: 065
  8. IMODIUM [Concomitant]
     Route: 048
  9. ENALAPRIL MALEATE [Concomitant]
     Route: 065
  10. OMEPRAZOLE [Concomitant]
     Route: 065
  11. ZOCOR [Concomitant]
     Route: 065
  12. HYDROCHLOROTHIAZIDE [Concomitant]
     Route: 065
  13. ZYRTEC [Concomitant]
     Route: 065
  14. VITAMIN CAP [Concomitant]
     Route: 048

REACTIONS (1)
  - DEHYDRATION [None]
